FAERS Safety Report 26022894 (Version 1)
Quarter: 2025Q4

REPORT INFORMATION
  Report Type: Spontaneous
  Country: EU (occurrence: EU)
  Receive Date: 20251110
  Receipt Date: 20251110
  Transmission Date: 20260118
  Serious: Yes (Other)
  Sender: INCYTE
  Company Number: EU-002147023-NVSC2025DE169193

PATIENT
  Age: 87 Year

DRUGS (3)
  1. RUXOLITINIB [Suspect]
     Active Substance: RUXOLITINIB
     Indication: Polycythaemia vera
     Dosage: 10 MG(1-0-1)
     Route: 065
  2. CLOPIDOGREL [Concomitant]
     Active Substance: CLOPIDOGREL BISULFATE
     Indication: Product used for unknown indication
     Dosage: 75 MG
     Route: 065
  3. BISOPROLOL [Concomitant]
     Active Substance: BISOPROLOL
     Indication: Product used for unknown indication
     Dosage: UNK
     Route: 065

REACTIONS (11)
  - Myocardial infarction [Unknown]
  - Dementia [Unknown]
  - Atrial fibrillation [Unknown]
  - Urinary bladder haemorrhage [Unknown]
  - Haemoglobin decreased [Unknown]
  - Dyspnoea [Unknown]
  - Dizziness [Unknown]
  - Tinnitus [Unknown]
  - Cognitive disorder [Unknown]
  - SF3B1 gene mutation [Unknown]
  - Thrombocytosis [Unknown]
